FAERS Safety Report 5225185-9 (Version None)
Quarter: 2007Q1

REPORT INFORMATION
  Report Type: 
  Country: None (occurrence: None)
  Receive Date: 20070131
  Receipt Date: 20070122
  Transmission Date: 20070707
  Serious: Yes (Hospitalization, Other)
  Sender: FDA-Public Use
  Company Number: JP-MERCK-0701USA04496

PATIENT
  Age: 60 Year
  Sex: Female

DRUGS (1)
  1. PEPCID [Suspect]
     Route: 048

REACTIONS (1)
  - TORSADE DE POINTES [None]
